FAERS Safety Report 4576820-X (Version None)
Quarter: 2005Q1

REPORT INFORMATION
  Report Type: 
  Country: None (occurrence: None)
  Receive Date: 20050207
  Receipt Date: 20050124
  Transmission Date: 20050727
  Serious: Yes (Hospitalization, Other)
  Sender: FDA-Public Use
  Company Number: 2005021020

PATIENT
  Weight: 91.6266 kg

DRUGS (2)
  1. CELEBREX [Suspect]
     Indication: ARTHRITIS
     Dosage: 200 MG (200 MG 1 IN 1 D) ORAL
     Route: 048
     Dates: start: 20030101
  2. BEXTRA [Suspect]
     Indication: ARTHRITIS
     Dosage: (1 IN 1 D) ORAL
     Route: 048
     Dates: start: 20040101, end: 20040101

REACTIONS (3)
  - ARTHRALGIA [None]
  - CONDITION AGGRAVATED [None]
  - DRUG INEFFECTIVE [None]
